FAERS Safety Report 8889347 (Version 1)
Quarter: 2012Q4

REPORT INFORMATION
  Report Type: Spontaneous
  Country: US (occurrence: None)
  Receive Date: 20121102
  Receipt Date: 20121102
  Transmission Date: 20130627
  Serious: Yes (Hospitalization)
  Sender: FDA-Public Use
  Company Number: None

PATIENT
  Age: 32 Year
  Sex: Male
  Weight: 101.61 kg

DRUGS (1)
  1. LURASIDONE [Suspect]

REACTIONS (1)
  - Deep vein thrombosis [None]
